FAERS Safety Report 8732619 (Version 2)
Quarter: 2012Q4

REPORT INFORMATION
  Report Type: Report from Study
  Country: RU (occurrence: RU)
  Receive Date: 20120820
  Receipt Date: 20121030
  Transmission Date: 20130627
  Serious: Yes (Death, Hospitalization)
  Sender: FDA-Public Use
  Company Number: RU-CELGENEUS-251-C5013-12081725

PATIENT
  Age: 73 Year
  Sex: Male
  Weight: 62 kg

DRUGS (9)
  1. CC-5013 [Suspect]
     Indication: B-CELL CHRONIC LYMPHOCYTIC LEUKAEMIA
     Dosage: 5 Milligram
     Route: 048
     Dates: start: 20100616
  2. CC-5013 [Suspect]
     Route: 048
     Dates: end: 20120409
  3. IMIPENEM [Concomitant]
     Indication: FEVER
     Dosage: 2000 Milligram
     Route: 041
     Dates: start: 20120410, end: 20120414
  4. IMIPENEM [Concomitant]
     Dosage: 1000 Milligram
     Route: 041
     Dates: start: 20120427, end: 20120428
  5. VANCOMYCIN [Concomitant]
     Indication: FEVER
     Dosage: 2 Gram
     Route: 041
     Dates: start: 20120412, end: 20120414
  6. VANCOMYCIN [Concomitant]
     Dosage: 1 Gram
     Route: 041
     Dates: start: 20120427, end: 20120427
  7. FLUCONAZOLE [Concomitant]
     Indication: FEVER
     Dosage: 600 Gram
     Route: 041
     Dates: start: 20120405, end: 20120423
  8. ACYCLOVIR [Concomitant]
     Indication: ANTIVIRAL PROPHYLAXIS
     Dosage: 600 Milligram
     Route: 048
     Dates: start: 20120404, end: 20120423
  9. BISEPTOL [Concomitant]
     Indication: PROPHYLAXIS
     Dosage: 480 Milligram
     Route: 048
     Dates: start: 20120404, end: 20120423

REACTIONS (1)
  - Hodgkin^s disease [Fatal]
